FAERS Safety Report 25607692 (Version 1)
Quarter: 2025Q3

REPORT INFORMATION
  Report Type: Spontaneous
  Country: US (occurrence: US)
  Receive Date: 20250725
  Receipt Date: 20250725
  Transmission Date: 20251020
  Serious: No
  Sender: NOVARTIS
  Company Number: US-002147023-NVSC2025US114778

PATIENT
  Age: 37 Year
  Sex: Female

DRUGS (1)
  1. FABHALTA [Suspect]
     Active Substance: IPTACOPAN HYDROCHLORIDE
     Indication: IgA nephropathy
     Dosage: 200 MG, BID
     Route: 048
     Dates: start: 202503, end: 20250626

REACTIONS (3)
  - Fatigue [Unknown]
  - Sinusitis [Unknown]
  - Asthenia [Unknown]
